FAERS Safety Report 9149382 (Version 1)
Quarter: 2013Q1

REPORT INFORMATION
  Report Type: Spontaneous
  Country: US (occurrence: US)
  Receive Date: 20130308
  Receipt Date: 20130308
  Transmission Date: 20140127
  Serious: Yes (Hospitalization)
  Sender: FDA-Public Use
  Company Number: US-ENDO PHARMACEUTICALS INC.-OPCR20121253

PATIENT
  Age: 46 Year
  Sex: Female
  Weight: 74 kg

DRUGS (3)
  1. OPANA ER 20MG [Suspect]
     Indication: PAIN
     Route: 048
     Dates: start: 2012, end: 201206
  2. OPANA ER 20MG [Suspect]
     Dosage: UNK
     Route: 048
     Dates: start: 201207
  3. OPANA ER 20MG [Concomitant]
     Indication: PAIN
     Dosage: 20 MG
     Route: 048
     Dates: end: 2012

REACTIONS (4)
  - Palpitations [Recovered/Resolved]
  - Dyspnoea [Recovered/Resolved]
  - Headache [Not Recovered/Not Resolved]
  - Drug ineffective [Recovered/Resolved]
